FAERS Safety Report 14843202 (Version 3)
Quarter: 2018Q3

REPORT INFORMATION
  Report Type: Spontaneous
  Country: US (occurrence: US)
  Receive Date: 20180503
  Receipt Date: 20180702
  Transmission Date: 20181010
  Serious: Yes (Hospitalization, Other)
  Sender: FDA-Public Use
  Company Number: US-PFIZER INC-2018179995

PATIENT
  Age: 73 Year
  Sex: Female

DRUGS (14)
  1. XELJANZ [Suspect]
     Active Substance: TOFACITINIB CITRATE
     Indication: RHEUMATOID ARTHRITIS
     Dosage: 5 MG, 2X/DAY
     Dates: start: 2016
  2. PROLIA [Suspect]
     Active Substance: DENOSUMAB
     Dosage: UNK
     Dates: start: 2017
  3. LORATADINE. [Concomitant]
     Active Substance: LORATADINE
     Dosage: UNK
  4. HUMIRA [Suspect]
     Active Substance: ADALIMUMAB
     Dosage: UNK
     Route: 058
  5. XELJANZ [Suspect]
     Active Substance: TOFACITINIB CITRATE
     Dosage: 10 MG, 1X/DAY
     Dates: start: 2016
  6. CALCIUM [Concomitant]
     Active Substance: CALCIUM
     Dosage: UNK
  7. LEVOTHYROXINE. [Concomitant]
     Active Substance: LEVOTHYROXINE
     Dosage: UNK
  8. OMEPRAZOLE. [Concomitant]
     Active Substance: OMEPRAZOLE
     Dosage: UNK
  9. XELJANZ [Suspect]
     Active Substance: TOFACITINIB CITRATE
     Dosage: 5 MG, 1X/DAY
  10. HUMIRA [Suspect]
     Active Substance: ADALIMUMAB
     Indication: RHEUMATOID ARTHRITIS
     Dosage: UNK
     Route: 058
     Dates: start: 2008
  11. FERROUS [Concomitant]
     Active Substance: IRON
     Dosage: UNK
  12. PROLIA [Suspect]
     Active Substance: DENOSUMAB
     Dosage: UNK
  13. SULINDAC. [Concomitant]
     Active Substance: SULINDAC
     Dosage: UNK
  14. TYLENOL WITH CODEINE [Concomitant]
     Active Substance: ACETAMINOPHEN\CODEINE PHOSPHATE
     Dosage: UNK

REACTIONS (15)
  - Condition aggravated [Unknown]
  - Cough [Recovered/Resolved]
  - Deafness [Not Recovered/Not Resolved]
  - Tuberculosis [Unknown]
  - Sensitivity to weather change [Not Recovered/Not Resolved]
  - Immunodeficiency [Recovered/Resolved]
  - Rhinorrhoea [Recovered/Resolved]
  - Mucosal discolouration [Not Recovered/Not Resolved]
  - Nasopharyngitis [Recovered/Resolved]
  - Peripheral coldness [Recovered/Resolved]
  - Malaise [Not Recovered/Not Resolved]
  - Confusional state [Unknown]
  - Asthenia [Not Recovered/Not Resolved]
  - Incorrect dose administered [Unknown]
  - Rheumatoid arthritis [Unknown]

NARRATIVE: CASE EVENT DATE: 2017
